FAERS Safety Report 10074332 (Version 1)
Quarter: 2014Q2

REPORT INFORMATION
  Report Type: Spontaneous
  Country: US (occurrence: US)
  Receive Date: 20140411
  Receipt Date: 20140411
  Transmission Date: 20141212
  Serious: No
  Sender: FDA-Public Use
  Company Number: US-SANOFI-AVENTIS-2013SA050867

PATIENT
  Age: 62 Year
  Sex: Male

DRUGS (1)
  1. ALLEGRA D [Suspect]
     Indication: HYPERSENSITIVITY
     Dosage: 60/120MG
     Route: 048

REACTIONS (2)
  - Medication residue present [Unknown]
  - Drug ineffective [Unknown]
